FAERS Safety Report 17533855 (Version 2)
Quarter: 2020Q2

REPORT INFORMATION
  Report Type: Spontaneous
  Country: SE (occurrence: SE)
  Receive Date: 20200312
  Receipt Date: 20200425
  Transmission Date: 20200713
  Serious: Yes (Other)
  Sender: FDA-Public Use
  Company Number: SE-ACCORD-175429

PATIENT

DRUGS (1)
  1. AMLODIPINE [Suspect]
     Active Substance: AMLODIPINE BESYLATE
     Indication: HYPERTENSION
     Dosage: STRENGTH: 10 MG
     Dates: start: 20200103, end: 20200213

REACTIONS (2)
  - Pneumonia [Unknown]
  - Dyspnoea [Unknown]
